FAERS Safety Report 7344711-7 (Version None)
Quarter: 2011Q1

REPORT INFORMATION
  Report Type: 
  Country: None (occurrence: None)
  Receive Date: 20110310
  Receipt Date: 20110225
  Transmission Date: 20110831
  Serious: Yes (Other)
  Sender: FDA-Public Use
  Company Number: PHHY2011US16669

PATIENT
  Sex: Female

DRUGS (3)
  1. DIOVAN [Suspect]
     Dosage: 160 MG, QD
  2. LIPITOR [Concomitant]
     Dosage: 20 MG, UNK
  3. TENORMIN [Concomitant]
     Dosage: 50 MG, QD

REACTIONS (2)
  - HYPERTENSION [None]
  - ATRIOVENTRICULAR BLOCK [None]
